FAERS Safety Report 5401078-9 (Version None)
Quarter: 2007Q3

REPORT INFORMATION
  Report Type: 
  Country: None (occurrence: None)
  Receive Date: 20070731
  Receipt Date: 20070720
  Transmission Date: 20080115
  Serious: Yes (Death, Hospitalization)
  Sender: FDA-Public Use
  Company Number: FR-JNJFOC-20070705021

PATIENT
  Sex: Male

DRUGS (5)
  1. RISPERDAL [Suspect]
     Indication: PSYCHOTIC DISORDER
     Route: 048
  2. HALDOL [Suspect]
     Indication: PSYCHOTIC DISORDER
     Route: 042
  3. NOZINAN [Suspect]
     Indication: PSYCHOTIC DISORDER
  4. IMOVANE [Concomitant]
     Indication: INSOMNIA
  5. SERESTA [Concomitant]
     Indication: PSYCHOTIC DISORDER

REACTIONS (3)
  - COLITIS [None]
  - INTESTINAL OBSTRUCTION [None]
  - SEPSIS [None]
